FAERS Safety Report 7095624-X (Version None)
Quarter: 2010Q4

REPORT INFORMATION
  Report Type: 
  Country: None (occurrence: None)
  Receive Date: 20101111
  Receipt Date: 20101101
  Transmission Date: 20110411
  Serious: Yes (Hospitalization, Other)
  Sender: FDA-Public Use
  Company Number: US-ELI_LILLY_AND_COMPANY-US201002003440

PATIENT
  Sex: Female
  Weight: 111.11 kg

DRUGS (20)
  1. BYETTA [Suspect]
     Dosage: 10 UG, 2/D
     Route: 058
     Dates: start: 20070703, end: 20090718
  2. SIMVASTATIN [Concomitant]
     Indication: HYPERCHOLESTEROLAEMIA
     Dosage: 80 MG, DAILY (1/D)
  3. HYDROCHLOROTHIAZIDE [Concomitant]
     Indication: DIURETIC THERAPY
     Dosage: 12.5 MG, UNK
  4. LEXAPRO [Concomitant]
     Indication: DEPRESSION
     Dosage: 20 MG, DAILY (1/D)
  5. ZOFRAN [Concomitant]
     Indication: NAUSEA
     Dosage: 4 MG, EVERY 8 HRS AS NEEDED
     Route: 048
     Dates: start: 20090401
  6. REGLAN [Concomitant]
     Dosage: 5 MG, 4/D
  7. K-DUR [Concomitant]
     Dosage: 20 MEQ, 2/D
  8. ASPIRIN /USA/ [Concomitant]
     Dosage: 81 MG, DAILY (1/D)
  9. ZYRTEC [Concomitant]
     Dosage: 10 MG, DAILY (1/D)
  10. VITAMIN E [Concomitant]
     Dosage: 1000 IU, DAILY (1/D)
  11. TYLENOL (CAPLET) [Concomitant]
     Indication: OSTEOARTHRITIS
     Dosage: 1300 MG, DAILY (1/D)
  12. GLUCOPHAGE /USA/ [Concomitant]
     Indication: DIABETES MELLITUS
     Dosage: 1000 MG, 2/D
  13. MOBIC [Concomitant]
     Dosage: 75 MG, DAILY (1/D)
  14. PREMARIN [Concomitant]
     Dosage: 0.3 MG, DAILY (1/D)
  15. PREMARIN [Concomitant]
     Dosage: UNK, 2/W
  16. NEXIUM [Concomitant]
     Dosage: 40 MG, DAILY (1/D)
  17. MULTI-VITAMINS [Concomitant]
     Dosage: 1 D/F, DAILY (1/D)
  18. METAMUCIL-2 [Concomitant]
     Dosage: 960 G, AS NEEDED
  19. AMBIEN [Concomitant]
     Dosage: UNK, EACH EVENING AS NEEDED
  20. TESSALON [Concomitant]
     Dosage: 200 MG, 3/D AS NEEDED

REACTIONS (6)
  - DIARRHOEA [None]
  - HEPATIC ENZYME INCREASED [None]
  - LOSS OF CONSCIOUSNESS [None]
  - PANCREATITIS [None]
  - ROAD TRAFFIC ACCIDENT [None]
  - VOMITING [None]
